FAERS Safety Report 15566410 (Version 1)
Quarter: 2018Q4

REPORT INFORMATION
  Report Type: Spontaneous
  Country: GR (occurrence: GR)
  Receive Date: 20181030
  Receipt Date: 20181030
  Transmission Date: 20190205
  Serious: Yes (Other)
  Sender: FDA-Public Use
  Company Number: GR-PENTEC HEALTH-2018PEN00056

PATIENT
  Age: 47 Year
  Sex: Female

DRUGS (9)
  1. ROPIVACAINE HYDROCHLORIDE. [Suspect]
     Active Substance: ROPIVACAINE HYDROCHLORIDE
     Indication: NERVE BLOCK
     Dosage: 15 MG (0.5%), ONCE
     Route: 065
  2. MIDAZOLAM [Concomitant]
     Active Substance: MIDAZOLAM HYDROCHLORIDE
     Route: 065
  3. FENTANYL. [Concomitant]
     Active Substance: FENTANYL
     Route: 065
  4. ROCURONIUM [Concomitant]
     Active Substance: ROCURONIUM BROMIDE
     Route: 065
  5. PARACETAMOL [Concomitant]
     Active Substance: ACETAMINOPHEN
     Route: 065
  6. DESFLURANE. [Concomitant]
     Active Substance: DESFLURANE
     Route: 065
  7. PROPOFOL. [Concomitant]
     Active Substance: PROPOFOL
     Route: 065
  8. REMIFENTANIL [Concomitant]
     Active Substance: REMIFENTANIL
     Route: 065
  9. PETHIDINE [Concomitant]
     Active Substance: MEPERIDINE
     Route: 065

REACTIONS (2)
  - Anaesthetic complication [Recovered/Resolved]
  - Autonomic neuropathy [Recovered/Resolved]
